FAERS Safety Report 8179146-0 (Version None)
Quarter: 2012Q1

REPORT INFORMATION
  Report Type: 
  Country: None (occurrence: None)
  Receive Date: 20120302
  Receipt Date: 20120227
  Transmission Date: 20120608
  Serious: No
  Sender: FDA-Public Use
  Company Number: US-PFIZER INC-2012052779

PATIENT
  Sex: Female
  Weight: 90.703 kg

DRUGS (13)
  1. GLUCOPHAGE [Concomitant]
     Indication: DIABETES MELLITUS
     Dosage: 1000 MG, 2X/DAY
  2. ROBAXIN [Concomitant]
     Indication: MUSCLE SPASMS
     Dosage: 750 MG, 3X/DAY
  3. ALPRAZOLAM [Concomitant]
     Indication: ANXIETY
     Dosage: 0.5 MG, DAILY
  4. METOPROLOL TARTRATE [Suspect]
     Indication: HYPERTENSION
     Dosage: 100 MG, 2X/DAY
  5. CELEBREX [Concomitant]
     Indication: PAIN IN EXTREMITY
     Dosage: 200 MG, DAILY
  6. LIPITOR [Suspect]
     Indication: BLOOD TRIGLYCERIDES INCREASED
     Dosage: 20 MG, DAILY
     Dates: end: 20111201
  7. GLYBURIDE [Concomitant]
     Indication: DIABETES MELLITUS
     Dosage: 3MG HALF A TABLET DAILY
  8. CELEBREX [Concomitant]
     Indication: BACK PAIN
  9. VITAMIN D [Concomitant]
     Dosage: 50000 IU, WEEKLY
  10. VITAMIN E [Concomitant]
     Dosage: UNK
  11. CALCIUM [Concomitant]
     Dosage: DAILY
  12. FISH OIL [Concomitant]
     Dosage: UNK
  13. HYDROCODONE [Concomitant]
     Indication: PAIN
     Dosage: 500 MG, DAILY

REACTIONS (3)
  - DYSPNOEA [None]
  - NASOPHARYNGITIS [None]
  - NASAL CONGESTION [None]
